FAERS Safety Report 17190868 (Version 1)
Quarter: 2020Q1

REPORT INFORMATION
  Report Type: Spontaneous
  Country: US (occurrence: US)
  Receive Date: 20191220
  Receipt Date: 20191220
  Transmission Date: 20200409
  Serious: No
  Sender: FDA-Public Use
  Company Number: None

PATIENT

DRUGS (2)
  1. DEXTROTHYROXINE [Suspect]
     Active Substance: DEXTROTHYROXINE
  2. DEXTROTHYROXINE [Suspect]
     Active Substance: DEXTROTHYROXINE

REACTIONS (1)
  - Treatment failure [None]
